FAERS Safety Report 14526791 (Version 2)
Quarter: 2018Q1

REPORT INFORMATION
  Report Type: Spontaneous
  Country: TR (occurrence: TR)
  Receive Date: 20180213
  Receipt Date: 20180326
  Transmission Date: 20180509
  Serious: Yes (Other)
  Sender: FDA-Public Use
  Company Number: TR-PFIZER INC-2018062373

PATIENT
  Age: 55 Year
  Sex: Female
  Weight: 59 kg

DRUGS (5)
  1. NASONEX AQUEOUS [Suspect]
     Active Substance: MOMETASONE FUROATE
     Indication: UPPER-AIRWAY COUGH SYNDROME
     Dosage: UNK UNK, 2X/DAY
     Route: 045
     Dates: start: 20180125
  2. NASONEX AQUEOUS [Suspect]
     Active Substance: MOMETASONE FUROATE
     Indication: LOWER RESPIRATORY TRACT INFECTION
  3. CALCIMAX D3 /00944201/ [Suspect]
     Active Substance: CALCIUM CARBONATE\CHOLECALCIFEROL
     Dosage: UNK
  4. CIPROXIN /00697201/ [Suspect]
     Active Substance: CIPROFLOXACIN
     Indication: LOWER RESPIRATORY TRACT INFECTION
     Dosage: 500 MG, 2X/DAY
     Route: 048
     Dates: start: 20180125
  5. LUSTRAL [Suspect]
     Active Substance: SERTRALINE HYDROCHLORIDE
     Indication: FIBROMYALGIA
     Dosage: 25 MG (HALF OF 50 MG TABLET), UNK
     Route: 048
     Dates: start: 20180125

REACTIONS (3)
  - Bone pain [Recovering/Resolving]
  - Product use in unapproved indication [Unknown]
  - Myalgia [Recovering/Resolving]

NARRATIVE: CASE EVENT DATE: 20180128
